FAERS Safety Report 21948810 (Version 1)
Quarter: 2023Q1

REPORT INFORMATION
  Report Type: Spontaneous
  Country: JP (occurrence: JP)
  Receive Date: 20230203
  Receipt Date: 20230203
  Transmission Date: 20230418
  Serious: Yes (Other)
  Sender: FDA-Public Use
  Company Number: JP-PBT-006981

PATIENT
  Age: 53 Year
  Sex: Male

DRUGS (2)
  1. TACROLIMUS [Suspect]
     Active Substance: TACROLIMUS
     Indication: Chronic graft versus host disease
     Route: 065
  2. PREDNISOLONE [Suspect]
     Active Substance: PREDNISOLONE
     Indication: Chronic graft versus host disease
     Route: 065

REACTIONS (4)
  - Graft versus host disease in skin [Recovered/Resolved]
  - Acute myeloid leukaemia [Recovered/Resolved]
  - Disease recurrence [Recovered/Resolved]
  - Product use in unapproved indication [Unknown]
